FAERS Safety Report 24592123 (Version 1)
Quarter: 2024Q4

REPORT INFORMATION
  Report Type: Spontaneous
  Country: US (occurrence: US)
  Receive Date: 20241108
  Receipt Date: 20241108
  Transmission Date: 20250115
  Serious: No
  Sender: Haleon PLC
  Company Number: US-MMM-6N8QZBJO

PATIENT
  Age: 38 Year
  Sex: Female
  Weight: 63.5 kg

DRUGS (3)
  1. IBUPROFEN [Suspect]
     Active Substance: IBUPROFEN
     Indication: Product used for unknown indication
  2. NURTEC ODT [Suspect]
     Active Substance: RIMEGEPANT SULFATE
     Indication: Migraine
     Dosage: TIME INTERVAL: AS NECESSARY
     Dates: start: 20241104
  3. SUMATRIPTAN [Suspect]
     Active Substance: SUMATRIPTAN
     Indication: Product used for unknown indication

REACTIONS (6)
  - Dry throat [Unknown]
  - Sensation of foreign body [Unknown]
  - Dysphagia [Unknown]
  - Hypersensitivity [Unknown]
  - Potentiating drug interaction [Unknown]
  - Oropharyngeal discomfort [Unknown]

NARRATIVE: CASE EVENT DATE: 20241104
